FAERS Safety Report 4818315-1 (Version None)
Quarter: 2005Q4

REPORT INFORMATION
  Report Type: 
  Country: None (occurrence: None)
  Receive Date: 20051102
  Receipt Date: 20051026
  Transmission Date: 20060501
  Serious: Yes (Other)
  Sender: FDA-Public Use
  Company Number: PHEH2005US11883

PATIENT
  Age: 31 Year
  Sex: Female
  Weight: 116 kg

DRUGS (2)
  1. TRILEPTAL [Suspect]
     Dosage: 900 MG, BID
     Route: 048
     Dates: start: 20040301
  2. KEPPRA [Concomitant]
     Indication: CONVULSION
     Dosage: 1000 MG, QD
     Route: 048
     Dates: start: 20041101

REACTIONS (5)
  - GALLBLADDER OPERATION [None]
  - LIPASE INCREASED [None]
  - OESOPHAGEAL DISORDER [None]
  - VOMITING [None]
  - WEIGHT DECREASED [None]
